FAERS Safety Report 11752823 (Version 1)
Quarter: 2015Q4

REPORT INFORMATION
  Report Type: Report from Study
  Country: US (occurrence: US)
  Receive Date: 20151119
  Receipt Date: 20151119
  Transmission Date: 20160304
  Serious: No
  Sender: FDA-Public Use
  Company Number: PHHY2015US147196

PATIENT
  Age: 80 Year
  Sex: Female

DRUGS (1)
  1. EXJADE [Suspect]
     Active Substance: DEFERASIROX
     Indication: MYELODYSPLASTIC SYNDROME
     Dosage: 1000 MG, QD
     Route: 048

REACTIONS (3)
  - Haemoglobin decreased [Not Recovered/Not Resolved]
  - Fatigue [Not Recovered/Not Resolved]
  - Platelet count decreased [Not Recovered/Not Resolved]
